FAERS Safety Report 9337038 (Version 2)
Quarter: 2013Q3

REPORT INFORMATION
  Report Type: Spontaneous
  Country: FR (occurrence: FR)
  Receive Date: 20130607
  Receipt Date: 20130805
  Transmission Date: 20140515
  Serious: Yes (Other)
  Sender: FDA-Public Use
  Company Number: FR-PFIZER INC-2013164120

PATIENT
  Sex: Female

DRUGS (2)
  1. LYRICA [Suspect]
     Indication: NEURALGIA
     Dosage: 300 MG DAILY
  2. LYRICA [Suspect]
     Dosage: 500 MG DAILY

REACTIONS (2)
  - Epilepsy [Unknown]
  - Breast cancer [Unknown]
